FAERS Safety Report 5534990-0 (Version None)
Quarter: 2007Q4

REPORT INFORMATION
  Report Type: 
  Country: None (occurrence: None)
  Receive Date: 20071203
  Receipt Date: 20071108
  Transmission Date: 20080405
  Serious: Yes (Other)
  Sender: FDA-Public Use
  Company Number: CIP07000961

PATIENT
  Sex: Female

DRUGS (3)
  1. ACTONEL [Suspect]
     Dosage: 35 MG, ONCE WEEKLY, ORAL
     Route: 048
  2. SYNTHROID A                                (LEVOTHYROXINE SODIUM) [Concomitant]
  3. CALCIUM D (COLECALCIFEROL, CALCIUM CARBONATE) [Concomitant]

REACTIONS (17)
  - BONE EROSION [None]
  - BONE LESION [None]
  - ECCHYMOSIS [None]
  - FACIAL PAIN [None]
  - MASTICATION DISORDER [None]
  - MOUTH CYST [None]
  - NASAL CYST [None]
  - NASAL OEDEMA [None]
  - OSTEONECROSIS [None]
  - PAIN [None]
  - PARANASAL SINUS DISCOMFORT [None]
  - POST PROCEDURAL COMPLICATION [None]
  - RHINALGIA [None]
  - RHINORRHOEA [None]
  - SINUS HEADACHE [None]
  - SINUSITIS ASPERGILLUS [None]
  - TOOTHACHE [None]
